FAERS Safety Report 9831857 (Version 2)
Quarter: 2014Q1

REPORT INFORMATION
  Report Type: Spontaneous
  Country: MX (occurrence: MX)
  Receive Date: 20140121
  Receipt Date: 20140121
  Transmission Date: 20141002
  Serious: Yes (Other)
  Sender: FDA-Public Use
  Company Number: MX-SA-BMS16720120

PATIENT
  Age: 40 Year
  Sex: Female
  Weight: 70 kg

DRUGS (1)
  1. AVALIDE TABS [Suspect]
     Indication: HYPERTENSION
     Dosage: 1DF=1 TABLET

REACTIONS (1)
  - Type 2 diabetes mellitus [Unknown]
